FAERS Safety Report 5881113-4 (Version None)
Quarter: 2008Q3

REPORT INFORMATION
  Report Type: 
  Country: None (occurrence: None)
  Receive Date: 20080912
  Receipt Date: 20080618
  Transmission Date: 20090109
  Serious: No
  Sender: FDA-Public Use
  Company Number: US-ABBOTT-08P-163-0458575-00

PATIENT
  Sex: Female
  Weight: 115.32 kg

DRUGS (14)
  1. HUMIRA [Suspect]
     Indication: CROHN'S DISEASE
     Route: 058
     Dates: start: 20080601, end: 20080601
  2. HUMIRA [Suspect]
     Route: 058
  3. VARENICLINE [Concomitant]
     Indication: SMOKING CESSATION THERAPY
     Route: 048
     Dates: start: 20080301
  4. TRAMADOL HCL [Concomitant]
     Indication: PAIN
     Route: 048
  5. ESOMEPRAZOLE MAGNESIUM [Concomitant]
     Indication: GASTROOESOPHAGEAL REFLUX DISEASE
     Route: 048
     Dates: start: 20030101
  6. DULOXETINE HYDROCHLORIDE [Concomitant]
     Indication: DEPRESSION
     Route: 048
     Dates: start: 20071001
  7. SULFASALAZINE [Concomitant]
     Indication: CROHN'S DISEASE
     Dosage: 500MG 2 TABS TWICE DAILY
     Route: 048
     Dates: start: 19930101
  8. DULOXETINE [Concomitant]
     Indication: DIARRHOEA
     Dosage: UP TO 4 PILLS DAILY
     Route: 048
     Dates: start: 20070501
  9. PREDNISONE TAB [Concomitant]
     Indication: CROHN'S DISEASE
     Dosage: 10 MG 2 TABS TWICE DAILY
     Route: 048
     Dates: start: 19930101
  10. INVETA [Concomitant]
     Indication: ANXIOLYTIC THERAPY
     Route: 048
     Dates: start: 20071201
  11. AZATHIOPRINE [Concomitant]
     Indication: CROHN'S DISEASE
     Route: 048
     Dates: start: 20070601
  12. TRAZODONE HCL [Concomitant]
     Indication: SLEEP DISORDER THERAPY
     Dosage: 150 MG 1.5 TABS AT NIGHT
     Route: 048
     Dates: start: 20070901
  13. PREGABALIN [Concomitant]
     Indication: PAIN
     Route: 048
     Dates: start: 20070601
  14. TOCOPHERYL ACETATE [Concomitant]
     Indication: VITAMIN SUPPLEMENTATION
     Route: 048

REACTIONS (6)
  - ASTHENIA [None]
  - FATIGUE [None]
  - INJECTION SITE ERYTHEMA [None]
  - INJECTION SITE REACTION [None]
  - INJECTION SITE URTICARIA [None]
  - VOMITING [None]
